FAERS Safety Report 18015538 (Version 1)
Quarter: 2020Q3

REPORT INFORMATION
  Report Type: Report from Study
  Country: CA (occurrence: CA)
  Receive Date: 20200713
  Receipt Date: 20200713
  Transmission Date: 20201103
  Serious: Yes (Other)
  Sender: FDA-Public Use
  Company Number: CA-BAYER-2020-048923

PATIENT
  Age: 86 Year
  Sex: Female

DRUGS (1)
  1. ADEMPAS [Suspect]
     Active Substance: RIOCIGUAT
     Indication: PULMONARY HYPERTENSION
     Dosage: 1 MG, TID
     Route: 048
     Dates: start: 20161028

REACTIONS (9)
  - Blood pressure decreased [None]
  - Blood pressure diastolic decreased [None]
  - Balance disorder [Not Recovered/Not Resolved]
  - Blood pressure systolic increased [None]
  - Hypotension [None]
  - Foot fracture [None]
  - Blood pressure fluctuation [Unknown]
  - Blood pressure increased [None]
  - Osteoporosis [Not Recovered/Not Resolved]

NARRATIVE: CASE EVENT DATE: 20200415
